FAERS Safety Report 8320433-0 (Version None)
Quarter: 2012Q2

REPORT INFORMATION
  Report Type: 
  Country: None (occurrence: None)
  Receive Date: 20120426
  Receipt Date: 20120426
  Transmission Date: 20120825
  Serious: Yes (Other)
  Sender: FDA-Public Use
  Company Number: None

PATIENT
  Sex: Female
  Weight: 86.1834 kg

DRUGS (1)
  1. CYMBALTA [Suspect]
     Dosage: 1 DAY
     Dates: start: 20081201, end: 20100101

REACTIONS (3)
  - CHOLECYSTECTOMY [None]
  - WEIGHT INCREASED [None]
  - WITHDRAWAL SYNDROME [None]
